FAERS Safety Report 6247786-1 (Version None)
Quarter: 2009Q2

REPORT INFORMATION
  Report Type: 
  Country: None (occurrence: None)
  Receive Date: 20090626
  Receipt Date: 20090615
  Transmission Date: 20091009
  Serious: Yes (Hospitalization)
  Sender: FDA-Public Use
  Company Number: GB-WYE-G03856309

PATIENT
  Sex: Female
  Weight: 55 kg

DRUGS (2)
  1. EFFEXOR XR [Suspect]
     Indication: DEPRESSION
     Dosage: 75MG/DAY FROM 5-6 YEARS AGO THEN 225MG/DAY 24-FEB-2009 AND INCREASED TO 300MG/DAY 08-JUN-2009
     Route: 048
  2. ZOPICLONE [Concomitant]
     Indication: INSOMNIA
     Route: 048
     Dates: start: 20040422

REACTIONS (9)
  - ANXIETY [None]
  - DECREASED APPETITE [None]
  - DRUG EXPOSURE DURING PREGNANCY [None]
  - DRUG INEFFECTIVE [None]
  - DRUG WITHDRAWAL SYNDROME [None]
  - HOT FLUSH [None]
  - MALABSORPTION [None]
  - MEDICATION RESIDUE [None]
  - PANIC ATTACK [None]
